FAERS Safety Report 9128592 (Version 2)
Quarter: 2013Q2

REPORT INFORMATION
  Report Type: Report from Study
  Country: US (occurrence: US)
  Receive Date: 20130125
  Receipt Date: 20130614
  Transmission Date: 20140414
  Serious: Yes (Death, Other)
  Sender: FDA-Public Use
  Company Number: US-ASTRAZENECA-2013SE04715

PATIENT
  Age: 91 Year
  Sex: Female

DRUGS (3)
  1. ATACAND HCT [Suspect]
     Route: 048
  2. SYMBICORT PMDI [Suspect]
     Route: 055
  3. ATACAND [Suspect]
     Route: 048

REACTIONS (2)
  - Respiratory distress [Fatal]
  - Adverse event [Unknown]
